FAERS Safety Report 9388927 (Version 3)
Quarter: 2013Q4

REPORT INFORMATION
  Report Type: Spontaneous
  Country: US (occurrence: US)
  Receive Date: 20130708
  Receipt Date: 20131210
  Transmission Date: 20140711
  Serious: Yes (Hospitalization)
  Sender: FDA-Public Use
  Company Number: US-B.I. PHARMACEUTICALS,INC./RIDGEFIELD-2013-BI-19169BP

PATIENT
  Age: 71 Year
  Sex: Female
  Weight: 96.62 kg

DRUGS (13)
  1. PRADAXA [Suspect]
     Indication: ATRIAL FIBRILLATION
     Dosage: 300 MG
     Route: 048
     Dates: start: 201102, end: 20120309
  2. AMBIEN [Concomitant]
     Route: 048
     Dates: start: 2005
  3. PRAVASTATIN [Concomitant]
     Route: 048
     Dates: start: 2009
  4. CITALOPRAM HBR [Concomitant]
     Dosage: 40 MG
     Route: 048
     Dates: start: 2006
  5. ALLOPURINOL [Concomitant]
     Dosage: 100 MG
     Route: 048
     Dates: start: 2010
  6. LOSARTAN POTASSIUM [Concomitant]
     Route: 048
  7. SPIRONOLACTONE [Concomitant]
     Dosage: 25 MG
     Route: 048
  8. LEVOTHYROXINE SODIUM [Concomitant]
     Dosage: 50 MG
     Route: 048
     Dates: start: 2010
  9. BREVIBLOC [Concomitant]
  10. BISOPROLOL [Concomitant]
     Dosage: 5 MG
     Route: 048
  11. PANTOPRAZOLE [Concomitant]
     Dates: start: 2010
  12. METOPROLOL [Concomitant]
     Dates: start: 2009
  13. ASPIRIN [Concomitant]

REACTIONS (1)
  - Lower gastrointestinal haemorrhage [Unknown]
